FAERS Safety Report 9383385 (Version 1)
Quarter: 2013Q3

REPORT INFORMATION
  Report Type: Spontaneous
  Country: PH (occurrence: PH)
  Receive Date: 20130704
  Receipt Date: 20130704
  Transmission Date: 20140515
  Serious: Yes (Hospitalization, Other)
  Sender: FDA-Public Use
  Company Number: PH-009507513-1307PHL000686

PATIENT
  Sex: 0

DRUGS (2)
  1. INVANZ [Suspect]
     Indication: URINARY TRACT INFECTION
     Dosage: UNK
     Dates: start: 20130601, end: 20130625
  2. INVANZ [Suspect]
     Dosage: CONTINUED LNVANZ AT HALF THE RECOMMENDED DOSAGE
     Dates: start: 20130626

REACTIONS (1)
  - Brain neoplasm [Unknown]
